FAERS Safety Report 24351019 (Version 2)
Quarter: 2024Q3

REPORT INFORMATION
  Report Type: Spontaneous
  Country: US (occurrence: US)
  Receive Date: 20240923
  Receipt Date: 20240924
  Transmission Date: 20241017
  Serious: Yes (Other)
  Sender: INCYTE
  Company Number: US-INCYTE CORPORATION-2024IN009997

PATIENT

DRUGS (5)
  1. JAKAFI [Suspect]
     Active Substance: RUXOLITINIB
     Indication: Graft versus host disease
     Dosage: 5 MILLIGRAM, QD
     Route: 048
     Dates: start: 20210120
  2. PREDNISONE [Concomitant]
     Active Substance: PREDNISONE
     Indication: Graft versus host disease
     Dosage: 25 MILLIGRAM, QD
     Route: 048
     Dates: start: 20190624
  3. IMATINIB [Concomitant]
     Active Substance: IMATINIB
     Indication: Graft versus host disease
     Dosage: 100 MILLIGRAM, QD
     Route: 048
     Dates: start: 20230614, end: 20240214
  4. AXATILIMAB [Concomitant]
     Active Substance: AXATILIMAB
     Indication: Graft versus host disease
     Dosage: 24 MILLIGRAM, EVERY 2 WEEKS
     Route: 042
     Dates: start: 20240117, end: 20240605
  5. AXATILIMAB [Concomitant]
     Active Substance: AXATILIMAB
     Dosage: 24 MILLIGRAM, EVERY 2 WEEKS
     Route: 042
     Dates: start: 20240618

REACTIONS (1)
  - Malignant fibrous histiocytoma [Recovering/Resolving]

NARRATIVE: CASE EVENT DATE: 20240424
